FAERS Safety Report 6554061-4 (Version None)
Quarter: 2010Q1

REPORT INFORMATION
  Report Type: 
  Country: None (occurrence: None)
  Receive Date: 20100125
  Receipt Date: 20100125
  Transmission Date: 20100710
  Serious: Yes (Disabling)
  Sender: FDA-Public Use
  Company Number: None

PATIENT
  Age: 67 Year
  Sex: Female
  Weight: 63.6 kg

DRUGS (1)
  1. PLAQUENIL [Suspect]
     Indication: IMMUNE SYSTEM DISORDER
     Dosage: 200 MG BID ORAL
     Route: 048
     Dates: start: 20000801, end: 20090301

REACTIONS (1)
  - SCOTOMA [None]
